FAERS Safety Report 15057291 (Version 1)
Quarter: 2018Q2

REPORT INFORMATION
  Report Type: Spontaneous
  Country: US (occurrence: US)
  Receive Date: 20180624
  Receipt Date: 20180624
  Transmission Date: 20180711
  Serious: No
  Sender: FDA-Public Use
  Company Number: US-ASTRAZENECA-2018SE71795

PATIENT
  Sex: Male
  Weight: 94.3 kg

DRUGS (3)
  1. BYDUREON [Concomitant]
     Active Substance: EXENATIDE
  2. BYETTA [Concomitant]
     Active Substance: EXENATIDE
     Dosage: TWICE A DAY
  3. BYDUREON BCISE [Suspect]
     Active Substance: EXENATIDE
     Indication: TYPE 2 DIABETES MELLITUS
     Route: 058
     Dates: start: 20180519

REACTIONS (2)
  - Injection site extravasation [Unknown]
  - Underdose [Unknown]
